FAERS Safety Report 4314036-2 (Version None)
Quarter: 2004Q1

REPORT INFORMATION
  Report Type: 
  Country: None (occurrence: None)
  Receive Date: 20040305
  Receipt Date: 20040224
  Transmission Date: 20041129
  Serious: Yes (Hospitalization)
  Sender: FDA-Public Use
  Company Number: FR-JNJFOC-20031000865

PATIENT
  Age: 81 Year
  Sex: Male
  Weight: 86 kg

DRUGS (2)
  1. HALDOL [Suspect]
     Indication: ADVERSE EVENT
     Dosage: 2 MG/ML, 1 IN 1 DAY, ORAL
     Route: 048
     Dates: start: 20030701, end: 20030712
  2. ATARAX [Suspect]
     Indication: ADVERSE EVENT
     Dosage: 75 MG, 1 IN 1 DAY, ORAL
     Route: 048
     Dates: start: 20030627, end: 20030829

REACTIONS (4)
  - DRUG INTERACTION [None]
  - KLEBSIELLA INFECTION [None]
  - NOSOCOMIAL INFECTION [None]
  - URINARY RETENTION [None]
